FAERS Safety Report 20382662 (Version 1)
Quarter: 2022Q1

REPORT INFORMATION
  Report Type: Spontaneous
  Country: FR (occurrence: FR)
  Receive Date: 20220127
  Receipt Date: 20220127
  Transmission Date: 20220423
  Serious: Yes (Hospitalization)
  Sender: FDA-Public Use
  Company Number: None

PATIENT
  Age: 46 Year
  Sex: Female

DRUGS (6)
  1. BUPRENORPHINE [Suspect]
     Active Substance: BUPRENORPHINE
     Dosage: UNSPECIFIED
     Route: 065
     Dates: start: 202102
  2. SUBOXONE [Suspect]
     Active Substance: BUPRENORPHINE HYDROCHLORIDE\NALOXONE HYDROCHLORIDE
     Dosage: UP TO 56 MG/D,SUBOXONE 8 MG/2 MG, SUBLINGUAL TABLET
     Route: 048
     Dates: start: 2018, end: 20210213
  3. CANNABIS SATIVA SUBSP. INDICA TOP [Suspect]
     Active Substance: CANNABIS SATIVA SUBSP. INDICA TOP
     Dosage: 4 TO 5 JOINTS/DAY
     Route: 055
     Dates: start: 1998
  4. ALCOHOL [Suspect]
     Active Substance: ALCOHOL
     Dosage: UNSPECIFIED
     Route: 048
  5. BROMAZEPAM [Suspect]
     Active Substance: BROMAZEPAM
     Dosage: UP TO 48 MG PER DAY,LEXOMIL 6 MG, FOUR-SCORED TABLET
     Route: 048
     Dates: start: 2005, end: 20210213
  6. CODEINE [Suspect]
     Active Substance: CODEINE
     Dosage: UP TO 48 TABLETS PER DAY
     Route: 048
     Dates: start: 2000, end: 2018

REACTIONS (7)
  - Tachycardia [Recovered/Resolved]
  - Incoherent [Recovered/Resolved]
  - Hallucination [Recovered/Resolved]
  - Logorrhoea [Recovered/Resolved]
  - Drug abuse [Not Recovered/Not Resolved]
  - Delusional disorder, persecutory type [Recovered/Resolved]
  - Sleep disorder [Recovering/Resolving]

NARRATIVE: CASE EVENT DATE: 19980101
